FAERS Safety Report 19199754 (Version 1)
Quarter: 2021Q2

REPORT INFORMATION
  Report Type: Report from Study
  Country: None (occurrence: US)
  Receive Date: 20210429
  Receipt Date: 20210429
  Transmission Date: 20210717
  Serious: Yes (Hospitalization, Other)
  Sender: FDA-Public Use
  Company Number: US-ABBVIE-21K-163-3881855-00

PATIENT
  Sex: Female
  Weight: 45.4 kg

DRUGS (1)
  1. CREON [Suspect]
     Active Substance: PANCRELIPASE AMYLASE\PANCRELIPASE LIPASE\PANCRELIPASE PROTEASE
     Indication: PRODUCT USED FOR UNKNOWN INDICATION
     Dosage: UNKNOWN
     Route: 048

REACTIONS (6)
  - Pain [Unknown]
  - Weight decreased [Unknown]
  - Pancreatic disorder [Unknown]
  - Head injury [Unknown]
  - Fall [Unknown]
  - Abscess [Unknown]
